FAERS Safety Report 21244655 (Version 1)
Quarter: 2022Q3

REPORT INFORMATION
  Report Type: Spontaneous
  Country: DE (occurrence: DE)
  Receive Date: 20220823
  Receipt Date: 20220823
  Transmission Date: 20221027
  Serious: No
  Sender: FDA-Public Use
  Company Number: DE-GSK-DE2022GSK120754

PATIENT

DRUGS (4)
  1. SOTROVIMAB [Suspect]
     Active Substance: SOTROVIMAB
     Indication: COVID-19 prophylaxis
     Dosage: 500 MG, Z EVERY 8 WEEKS
     Route: 042
     Dates: start: 20220209
  2. FINGOLIMOD [Concomitant]
     Active Substance: FINGOLIMOD
     Indication: Relapsing-remitting multiple sclerosis
     Dosage: UNK
  3. CASIRIVIMAB [Concomitant]
     Active Substance: CASIRIVIMAB
     Indication: COVID-19 prophylaxis
     Dosage: 600 MG, Z EVERY 4 WEEKS
     Route: 042
     Dates: start: 20220112
  4. IMDEVIMAB [Concomitant]
     Active Substance: IMDEVIMAB
     Indication: COVID-19 prophylaxis
     Dosage: 600 MG, Z EVERY 4 WEEKS
     Route: 042
     Dates: start: 20220112

REACTIONS (1)
  - Off label use [Unknown]
